FAERS Safety Report 5290608-6 (Version None)
Quarter: 2007Q2

REPORT INFORMATION
  Report Type: 
  Country: None (occurrence: None)
  Receive Date: 20070405
  Receipt Date: 20070405
  Transmission Date: 20071010
  Serious: Yes (Hospitalization)
  Sender: FDA-Public Use
  Company Number: None

PATIENT
  Sex: Female

DRUGS (1)
  1. ETHINYL ESTRADIOL/NORGESTIMATE LO [Suspect]
     Indication: CONTRACEPTION
     Dosage: 1 TAB PO Q DAY
     Route: 048

REACTIONS (1)
  - DEEP VEIN THROMBOSIS [None]
